FAERS Safety Report 16516400 (Version 1)
Quarter: 2019Q3

REPORT INFORMATION
  Report Type: Spontaneous
  Country: US (occurrence: US)
  Receive Date: 20190702
  Receipt Date: 20190702
  Transmission Date: 20191004
  Serious: Yes (Hospitalization)
  Sender: FDA-Public Use
  Company Number: None

PATIENT
  Age: 89 Year
  Sex: Female

DRUGS (11)
  1. LEFLUNOMIDE. [Concomitant]
     Active Substance: LEFLUNOMIDE
  2. LISINOPRIL. [Concomitant]
     Active Substance: LISINOPRIL
  3. SILDENAFIL. [Suspect]
     Active Substance: SILDENAFIL
     Indication: PULMONARY HYPERTENSION
     Route: 048
     Dates: start: 20180202
  4. ELIQUIS [Concomitant]
     Active Substance: APIXABAN
  5. HYDROCO/APAP [Concomitant]
     Active Substance: ACETAMINOPHEN\HYDROCODONE
  6. CARVEDILOL. [Concomitant]
     Active Substance: CARVEDILOL
  7. MEGESTROL [Concomitant]
     Active Substance: MEGESTROL
  8. AMIODARONE [Concomitant]
     Active Substance: AMIODARONE
  9. OMEPRAZOLE. [Concomitant]
     Active Substance: OMEPRAZOLE
  10. FUROSEMIDE. [Concomitant]
     Active Substance: FUROSEMIDE
  11. POTASSIUM CHLORIDE. [Concomitant]
     Active Substance: POTASSIUM CHLORIDE

REACTIONS (1)
  - Respiratory disorder [None]

NARRATIVE: CASE EVENT DATE: 20190607
